FAERS Safety Report 8178031-8 (Version None)
Quarter: 2012Q1

REPORT INFORMATION
  Report Type: 
  Country: None (occurrence: None)
  Receive Date: 20120126
  Receipt Date: 20111010
  Transmission Date: 20120608
  Serious: No
  Sender: FDA-Public Use
  Company Number: PHEH2011US06877

PATIENT
  Age: 76 Year
  Sex: Male

DRUGS (2)
  1. AFINITOR [Suspect]
     Indication: PANCREATIC CARCINOMA
     Dosage: 5 MG, QD, ORAL : 10 MG, QD, ORAL : 10 MG (HALF TABLET), ORAL
     Route: 048
     Dates: end: 20111001
  2. AFINITOR [Suspect]
     Indication: PANCREATIC CARCINOMA
     Dosage: 5 MG, QD, ORAL : 10 MG, QD, ORAL : 10 MG (HALF TABLET), ORAL
     Route: 048
     Dates: start: 20110601

REACTIONS (4)
  - SWELLING FACE [None]
  - HYPOAESTHESIA ORAL [None]
  - WRONG TECHNIQUE IN DRUG USAGE PROCESS [None]
  - HYPOAESTHESIA [None]
